FAERS Safety Report 15072306 (Version 1)
Quarter: 2018Q2

REPORT INFORMATION
  Report Type: Report from Study
  Country: US (occurrence: US)
  Receive Date: 20180626
  Receipt Date: 20180626
  Transmission Date: 20180711
  Serious: No
  Sender: FDA-Public Use
  Company Number: US-AMGEN-USASL2017008885

PATIENT
  Age: 66 Year
  Sex: Male

DRUGS (4)
  1. PROLIA [Suspect]
     Active Substance: DENOSUMAB
     Indication: TESTICULAR FAILURE
  2. PROLIA [Suspect]
     Active Substance: DENOSUMAB
     Indication: COMBINED IMMUNODEFICIENCY
     Dosage: 60 MG, Q6MO
     Route: 058
  3. PROLIA [Suspect]
     Active Substance: DENOSUMAB
     Indication: OSTEOPOROSIS
  4. PROLIA [Suspect]
     Active Substance: DENOSUMAB
     Indication: MOSAICISM

REACTIONS (1)
  - Off label use [Unknown]
